FAERS Safety Report 18197094 (Version 1)
Quarter: 2020Q3

REPORT INFORMATION
  Report Type: Spontaneous
  Country: US (occurrence: US)
  Receive Date: 20200825
  Receipt Date: 20200825
  Transmission Date: 20201103
  Serious: Yes (Hospitalization, Disabling)
  Sender: FDA-Public Use
  Company Number: None

PATIENT
  Age: 63 Year
  Sex: Female
  Weight: 111.58 kg

DRUGS (4)
  1. ZYPREXA [Concomitant]
     Active Substance: OLANZAPINE
  2. THORAZINE [Suspect]
     Active Substance: CHLORPROMAZINE
  3. ASPIRIN. [Concomitant]
     Active Substance: ASPIRIN
  4. DEPAKOTE [Suspect]
     Active Substance: DIVALPROEX SODIUM
     Dosage: ?          QUANTITY:1 OR 3 TEASPOONS;OTHER FREQUENCY:5 TIMES DAILY;?
     Route: 048
     Dates: start: 20170101, end: 20200625

REACTIONS (2)
  - Anxiety [None]
  - Pain [None]

NARRATIVE: CASE EVENT DATE: 20180901
